FAERS Safety Report 5328197-X (Version None)
Quarter: 2007Q2

REPORT INFORMATION
  Report Type: 
  Country: None (occurrence: None)
  Receive Date: 20070515
  Receipt Date: 20070504
  Transmission Date: 20071010
  Serious: Yes (Hospitalization, Other)
  Sender: FDA-Public Use
  Company Number: 2007BI007420

PATIENT
  Age: 61 Year
  Sex: Female
  Weight: 43.0917 kg

DRUGS (1)
  1. AVONEX [Suspect]
     Indication: MULTIPLE SCLEROSIS
     Dosage: 30 UG QW IM
     Route: 030
     Dates: start: 19990201

REACTIONS (7)
  - ABASIA [None]
  - BACK INJURY [None]
  - DYSSTASIA [None]
  - FALL [None]
  - FRACTURE [None]
  - INFECTION [None]
  - PYREXIA [None]
